FAERS Safety Report 14255800 (Version 1)
Quarter: 2017Q4

REPORT INFORMATION
  Report Type: Other
  Country: DE (occurrence: DE)
  Receive Date: 20171206
  Receipt Date: 20171206
  Transmission Date: 20180321
  Serious: Yes (Disabling)
  Sender: FDA-Public Use
  Company Number: DE-CELLTRION HEALTHCARE JAPAN K.K.-2017DE016490

PATIENT

DRUGS (1)
  1. REMSIMA [Suspect]
     Active Substance: INFLIXIMAB
     Indication: RHEUMATOID ARTHRITIS
     Dosage: 300 MG, EVERY 6 WEEKS
     Route: 042
     Dates: start: 20170711, end: 20170711

REACTIONS (2)
  - Inappropriate schedule of drug administration [Unknown]
  - Treatment failure [Recovering/Resolving]
